FAERS Safety Report 19272515 (Version 1)
Quarter: 2021Q2

REPORT INFORMATION
  Report Type: Spontaneous
  Country: JP (occurrence: JP)
  Receive Date: 20210519
  Receipt Date: 20210519
  Transmission Date: 20210717
  Serious: Yes (Other)
  Sender: FDA-Public Use
  Company Number: JP-TEVA-202105_00011731

PATIENT
  Age: 78 Year
  Sex: Female
  Weight: 48 kg

DRUGS (2)
  1. FOSTOIN [Suspect]
     Active Substance: FOSPHENYTOIN SODIUM
     Indication: EPILEPSY
     Route: 041
     Dates: start: 20200809, end: 20200809
  2. CERCINE [Suspect]
     Active Substance: DIAZEPAM
     Indication: EPILEPSY
     Route: 041
     Dates: start: 20200809, end: 20200810

REACTIONS (1)
  - Sinus bradycardia [Recovered/Resolved]

NARRATIVE: CASE EVENT DATE: 20200809
